FAERS Safety Report 7505348-X (Version None)
Quarter: 2011Q2

REPORT INFORMATION
  Report Type: 
  Country: None (occurrence: None)
  Receive Date: 20110526
  Receipt Date: 20110517
  Transmission Date: 20111010
  Serious: Yes (Other)
  Sender: FDA-Public Use
  Company Number: US-TEVA-281873USA

PATIENT
  Sex: Female

DRUGS (1)
  1. PIMOZIDE TABLETS [Suspect]
     Indication: SKIN BURNING SENSATION
     Dosage: 1/2 TABLET EVERY OTHER DAY

REACTIONS (8)
  - DIZZINESS [None]
  - ANXIETY [None]
  - TREMOR [None]
  - NAUSEA [None]
  - INSOMNIA [None]
  - MUSCLE TWITCHING [None]
  - WITHDRAWAL SYNDROME [None]
  - ABNORMAL SENSATION IN EYE [None]
